FAERS Safety Report 6396733-0 (Version None)
Quarter: 2009Q4

REPORT INFORMATION
  Report Type: 
  Country: None (occurrence: None)
  Receive Date: 20091012
  Receipt Date: 20090520
  Transmission Date: 20100525
  Serious: No
  Sender: FDA-Public Use
  Company Number: US-ASTRAZENECA-2008UW25227

PATIENT
  Age: 67 Year
  Sex: Female
  Weight: 57.2 kg

DRUGS (5)
  1. SYMBICORT [Suspect]
     Indication: CHRONIC OBSTRUCTIVE PULMONARY DISEASE
     Dosage: 160/4.5 MCG 120 INHALATIONS
     Route: 055
  2. SYMBICORT [Suspect]
     Dosage: 80/4.5
     Route: 055
  3. PREDNISONE [Concomitant]
     Route: 048
  4. SPIRIVA [Concomitant]
  5. BISOPROLOL [Concomitant]

REACTIONS (5)
  - EMPHYSEMA [None]
  - NERVOUSNESS [None]
  - ORAL CANDIDIASIS [None]
  - POOR QUALITY SLEEP [None]
  - WEIGHT INCREASED [None]
